FAERS Safety Report 22288263 (Version 1)
Quarter: 2023Q2

REPORT INFORMATION
  Report Type: Spontaneous
  Country: PT (occurrence: PT)
  Receive Date: 20230505
  Receipt Date: 20230505
  Transmission Date: 20230722
  Serious: Yes (Other)
  Sender: FDA-Public Use
  Company Number: None

PATIENT
  Age: 48 Year
  Sex: Male

DRUGS (2)
  1. CLARITHROMYCIN [Suspect]
     Active Substance: CLARITHROMYCIN
     Indication: Helicobacter test positive
     Dosage: 500 MILLIGRAM, BID (EVERY 12 HOURS)
     Route: 048
     Dates: start: 20210804, end: 20210804
  2. AMOXICILLIN [Suspect]
     Active Substance: AMOXICILLIN
     Indication: Helicobacter test positive
     Dosage: 1000 MILLIGRAM, BID (EVERY 12 HOURS)
     Route: 048
     Dates: start: 20210804, end: 20210804

REACTIONS (2)
  - Pruritus [Recovered/Resolved]
  - Feeling hot [Recovered/Resolved]

NARRATIVE: CASE EVENT DATE: 20210804
